FAERS Safety Report 7337512-7 (Version None)
Quarter: 2011Q1

REPORT INFORMATION
  Report Type: 
  Country: None (occurrence: None)
  Receive Date: 20110308
  Receipt Date: 20110225
  Transmission Date: 20110831
  Serious: Yes (Hospitalization)
  Sender: FDA-Public Use
  Company Number: NL-MEDIMMUNE-MEDI-0012782

PATIENT
  Sex: Male
  Weight: 4.27 kg

DRUGS (1)
  1. SYNAGIS [Suspect]
     Route: 013
     Dates: start: 20101229, end: 20110223

REACTIONS (1)
  - CRYING [None]
